FAERS Safety Report 16920081 (Version 6)
Quarter: 2020Q4

REPORT INFORMATION
  Report Type: Report from Study
  Country: CN (occurrence: CN)
  Receive Date: 20191015
  Receipt Date: 20201028
  Transmission Date: 20210113
  Serious: Yes (Hospitalization, Other)
  Sender: FDA-Public Use
  Company Number: CN-JNJFOC-20191009828

PATIENT
  Age: 49 Year
  Sex: Male
  Weight: 50 kg

DRUGS (2)
  1. SIRTURO [Suspect]
     Active Substance: BEDAQUILINE FUMARATE
     Route: 048
     Dates: start: 2019, end: 201910
  2. SIRTURO [Suspect]
     Active Substance: BEDAQUILINE FUMARATE
     Indication: TUBERCULOSIS
     Route: 048
     Dates: start: 20190731, end: 2019

REACTIONS (3)
  - Electrocardiogram ST-T segment abnormal [Recovered/Resolved]
  - QRS axis abnormal [Recovering/Resolving]
  - Intestinal obstruction [Recovered/Resolved]

NARRATIVE: CASE EVENT DATE: 20191004
